FAERS Safety Report 26174490 (Version 1)
Quarter: 2025Q4

REPORT INFORMATION
  Report Type: Spontaneous
  Country: GB (occurrence: GB)
  Receive Date: 20251218
  Receipt Date: 20251218
  Transmission Date: 20260118
  Serious: Yes (Other)
  Sender: INSUD PHARMA
  Company Number: None

PATIENT
  Age: 77 Year
  Sex: Male
  Weight: 60 kg

DRUGS (19)
  1. LANSOPRAZOLE [Suspect]
     Active Substance: LANSOPRAZOLE
     Indication: Ill-defined disorder
     Dosage: UNK
     Route: 065
     Dates: start: 20251212
  2. LANSOPRAZOLE [Concomitant]
     Active Substance: LANSOPRAZOLE
     Indication: Ill-defined disorder
     Dosage: TAKE ONE ONCE DAILY
     Route: 065
     Dates: start: 20251030, end: 20251127
  3. CLOPIDOGREL [Concomitant]
     Active Substance: CLOPIDOGREL BISULFATE
     Indication: Ill-defined disorder
     Dosage: TAKE ONE ONCE DAILY
     Route: 065
     Dates: start: 20240226
  4. ADCAL [CALCIUM CARBONATE;COLECALCIFEROL] [Concomitant]
     Indication: Ill-defined disorder
     Dosage: 1 TO BE TAKEN TWICE DAILY ( LEMON)
     Route: 065
     Dates: start: 20240226
  5. BALNEUM [GLYCINE MAX SEED OIL] [Concomitant]
     Indication: Ill-defined disorder
     Dosage: APPLY TWICE DAILY AND AS REQUIRED TO DRY AND IT...
     Route: 065
     Dates: start: 20240226
  6. FORCEVAL [AMINO ACIDS NOS;ELECTROLYTES NOS;FERROUS FUMARATE;NICOTINAMI [Concomitant]
     Indication: Ill-defined disorder
     Dosage: TAKE ONE DAILY
     Route: 065
     Dates: start: 20240226
  7. GABAPENTIN [Concomitant]
     Active Substance: GABAPENTIN
     Indication: Ill-defined disorder
     Dosage: 2 TO BE TAKEN THREE TIMES DAILY
     Route: 065
     Dates: start: 20240226
  8. CARBOMER [Concomitant]
     Active Substance: CARBOMER
     Indication: Ill-defined disorder
     Dosage: ONE DROP AS NEEDED.
     Route: 065
     Dates: start: 20250103
  9. CAPSAICIN [Concomitant]
     Active Substance: CAPSAICIN
     Indication: Ill-defined disorder
     Dosage: APPLY 2-3 TIMES/DAY
     Route: 065
     Dates: start: 20250106, end: 20251022
  10. FINASTERIDE [Concomitant]
     Active Substance: FINASTERIDE
     Indication: Ill-defined disorder
     Dosage: TAKE ONE DAILY
     Route: 065
     Dates: start: 20250106
  11. ISOPROPYL MYRISTATE\MINERAL OIL [Concomitant]
     Active Substance: ISOPROPYL MYRISTATE\MINERAL OIL
     Indication: Ill-defined disorder
     Dosage: APPLY AS NEEDED AS A REGULAR MOISTURISER AT LEA...
     Route: 065
     Dates: start: 20250120
  12. SIMVASTATIN [Concomitant]
     Active Substance: SIMVASTATIN
     Indication: Ill-defined disorder
     Dosage: TAKE ONE AT NIGHT
     Route: 065
     Dates: start: 20250120, end: 20251020
  13. TAMSULOSIN HYDROCHLORIDE [Concomitant]
     Active Substance: TAMSULOSIN HYDROCHLORIDE
     Indication: Ill-defined disorder
     Dosage: TAKE ONE AT NIGHT
     Dates: start: 20250520
  14. KETOCONAZOLE [Concomitant]
     Active Substance: KETOCONAZOLE
     Indication: Ill-defined disorder
     Dosage: TO BE USED AS MAINTENANCE ONCE A WEEK.  IN CASE...
     Route: 065
     Dates: start: 20250523
  15. CREON [Concomitant]
     Active Substance: PANCRELIPASE AMYLASE\PANCRELIPASE LIPASE\PANCRELIPASE PROTEASE
     Indication: Ill-defined disorder
     Dosage: TAKE 2 TABLETS WITH MEALS AND 1 TABLET WITH SNACKS
     Route: 065
     Dates: start: 20250619, end: 20251020
  16. LIDOCAINE [Concomitant]
     Active Substance: LIDOCAINE
     Indication: Ill-defined disorder
     Dosage: APPLY AS DIRECTED
     Route: 065
     Dates: start: 20250904
  17. BIOXTRA [Concomitant]
     Indication: Ill-defined disorder
     Dosage: USE AS DIRECTED
     Route: 065
     Dates: start: 20250926
  18. OMEPRAZOLE [Concomitant]
     Active Substance: OMEPRAZOLE
     Indication: Ill-defined disorder
     Dosage: TAKE ONE DAILY FOR 8 WEEKS THEN REVIEW
     Route: 065
     Dates: start: 20250926, end: 20251020
  19. FAMOTIDINE [Concomitant]
     Active Substance: FAMOTIDINE
     Indication: Ill-defined disorder
     Dosage: TAKE ONE TABLET AT NIGHT
     Route: 065
     Dates: start: 20251212

REACTIONS (1)
  - Chromaturia [Recovered/Resolved]

NARRATIVE: CASE EVENT DATE: 20251212
